FAERS Safety Report 17191945 (Version 2)
Quarter: 2019Q4

REPORT INFORMATION
  Report Type: Spontaneous
  Country: US (occurrence: US)
  Receive Date: 20191223
  Receipt Date: 20191227
  Transmission Date: 20200122
  Serious: No
  Sender: FDA-Public Use
  Company Number: US-NANJING KING-FRIEND BIOCHEMICAL PHARMACEUTICAL CO., LTD-2019NKF00033

PATIENT
  Age: 66 Year
  Sex: Male
  Weight: 120 kg

DRUGS (11)
  1. HEPARIN [Suspect]
     Active Substance: HEPARIN SODIUM
     Dosage: 2000 U, ONCE AT 10:05
     Route: 042
     Dates: start: 20191120, end: 20191120
  2. IRBESARTAN. [Concomitant]
     Active Substance: IRBESARTAN
  3. FLEXERIL [Concomitant]
     Active Substance: CYCLOBENZAPRINE HYDROCHLORIDE
  4. HEPARIN SODIUM. [Suspect]
     Active Substance: HEPARIN SODIUM
     Dosage: 3000 U, ONCE
     Route: 042
     Dates: start: 20191120, end: 20191120
  5. AMARYL [Concomitant]
     Active Substance: GLIMEPIRIDE
  6. HEPARIN SODIUM. [Suspect]
     Active Substance: HEPARIN SODIUM
     Indication: CATHETERISATION CARDIAC
     Dosage: 3000 U, ONCE AT 9:47
     Route: 042
     Dates: start: 20191120, end: 20191120
  7. HEPARIN [Suspect]
     Active Substance: HEPARIN SODIUM
     Indication: CATHETERISATION CARDIAC
     Dosage: 2000 U, ONCE AT 9:47
     Route: 042
     Dates: start: 20191120, end: 20191120
  8. AMBIEN [Concomitant]
     Active Substance: ZOLPIDEM TARTRATE
  9. HEPARIN [Suspect]
     Active Substance: HEPARIN SODIUM
     Dosage: 5000 U, ONCE AT 10:05
     Route: 042
     Dates: start: 20191120, end: 20191120
  10. LEXAPRO [Concomitant]
     Active Substance: ESCITALOPRAM OXALATE
  11. GLIMEPIRIDE. [Concomitant]
     Active Substance: GLIMEPIRIDE

REACTIONS (1)
  - Therapeutic product effect incomplete [Recovered/Resolved]

NARRATIVE: CASE EVENT DATE: 20191120
